FAERS Safety Report 6454654-9 (Version None)
Quarter: 2009Q4

REPORT INFORMATION
  Report Type: 
  Country: None (occurrence: None)
  Receive Date: 20091124
  Receipt Date: 20091116
  Transmission Date: 20100525
  Serious: Yes (Other)
  Sender: FDA-Public Use
  Company Number: PHHY2009BR50508

PATIENT
  Sex: Female

DRUGS (1)
  1. RITALIN [Suspect]
     Indication: ATTENTION DEFICIT/HYPERACTIVITY DISORDER
     Dosage: 10 MG, 2 TABLETS PER DAY
     Route: 048
     Dates: start: 20080201, end: 20080101

REACTIONS (4)
  - CEREBRAL ISCHAEMIA [None]
  - DEAFNESS UNILATERAL [None]
  - DISTURBANCE IN ATTENTION [None]
  - HEARING IMPAIRED [None]
